FAERS Safety Report 6388150-4 (Version None)
Quarter: 2009Q3

REPORT INFORMATION
  Report Type: 
  Country: None (occurrence: None)
  Receive Date: 20090930
  Receipt Date: 20090916
  Transmission Date: 20100115
  Serious: Yes (Other)
  Sender: FDA-Public Use
  Company Number: 8052509

PATIENT
  Age: 53 Year
  Sex: Female

DRUGS (4)
  1. KEPPRA [Suspect]
     Dosage: 3000 MG /D
  2. VALPROATE SODIUM [Suspect]
     Dosage: 1500 MG /D 1000 MG /D 500 MG /D
     Dates: start: 19970701
  3. TOPAMAX [Suspect]
     Dosage: 300 MG /D
  4. VIMPAT [Suspect]
     Dosage: 50 MG 2/D 150 MG 200 MG 250 MG 300 MG 350 MG
     Dates: start: 20081001

REACTIONS (3)
  - ALOPECIA [None]
  - HEMIPARESIS [None]
  - PARANOIA [None]
